FAERS Safety Report 21424039 (Version 1)
Quarter: 2022Q4

REPORT INFORMATION
  Report Type: Spontaneous
  Country: US (occurrence: None)
  Receive Date: 20221006
  Receipt Date: 20221006
  Transmission Date: 20230112
  Serious: No
  Sender: FDA-Public Use
  Company Number: None

PATIENT
  Age: 53 Year
  Sex: Female
  Weight: 98.43 kg

DRUGS (3)
  1. MYOVIEW [Suspect]
     Active Substance: TECHNETIUM TC-99M TETROFOSMIN
  2. KEFLEX [Concomitant]
     Active Substance: CEPHALEXIN
  3. Estrogen multisymptom [Concomitant]

REACTIONS (8)
  - Taste disorder [None]
  - Parosmia [None]
  - Hypoaesthesia oral [None]
  - Paraesthesia oral [None]
  - Lip swelling [None]
  - Cheilitis [None]
  - Chemical burn [None]
  - Contrast media reaction [None]

NARRATIVE: CASE EVENT DATE: 20221005
